FAERS Safety Report 9345359 (Version 1)
Quarter: 2013Q2

REPORT INFORMATION
  Report Type: Report from Study
  Country: JP (occurrence: JP)
  Receive Date: 20130613
  Receipt Date: 20130613
  Transmission Date: 20140414
  Serious: Yes (Death)
  Sender: FDA-Public Use
  Company Number: JP-PFIZER INC-2013173789

PATIENT
  Age: 65 Year
  Sex: Male
  Weight: 75 kg

DRUGS (7)
  1. FOSPHENYTOIN SODIUM [Suspect]
     Indication: CONVULSION PROPHYLAXIS
     Dosage: 10 MG/KG AT 1 MG/KG/MIN IN 0.9 % PHYSIOLOGICAL SALINE (1:7.7)
     Dates: start: 20130223
  2. FOSPHENYTOIN SODIUM [Suspect]
     Dosage: 5.3 MG/KG AT 1 MG/KG/MIN IN 0.9 % PHYSIOLOGICAL SALINE (1:7.3)
     Dates: start: 20130224
  3. MAGNESIUM OXIDE [Concomitant]
     Indication: PROPHYLAXIS
     Dosage: 2 G, UNK
     Route: 048
     Dates: start: 20130224
  4. MIYA BM [Concomitant]
     Indication: PROPHYLAXIS
     Dosage: 3 G, UNK
     Route: 048
     Dates: start: 20130224
  5. OLMETEC [Concomitant]
     Indication: PROPHYLAXIS
     Dosage: 40 MG, UNK
     Route: 048
     Dates: start: 20130224
  6. NORVASC [Concomitant]
     Indication: PROPHYLAXIS
     Dosage: 10 MG, UNK
     Route: 048
     Dates: start: 20130224
  7. TAKEPRON [Concomitant]
     Indication: PROPHYLAXIS
     Dosage: 15 MG, UNK
     Route: 048
     Dates: start: 20130224

REACTIONS (2)
  - Hypotension [Fatal]
  - Quadriplegia [Fatal]
